FAERS Safety Report 12991540 (Version 1)
Quarter: 2016Q4

REPORT INFORMATION
  Report Type: Spontaneous
  Country: US (occurrence: US)
  Receive Date: 20161201
  Receipt Date: 20161201
  Transmission Date: 20170207
  Serious: No
  Sender: FDA-Public Use
  Company Number: US-ENDO PHARMACEUTICALS INC.-2016-005502

PATIENT
  Age: 64 Year
  Sex: Female
  Weight: 61.29 kg

DRUGS (2)
  1. ALPRAZOLAM IR TABLETS 0.25MG [Concomitant]
     Active Substance: ALPRAZOLAM
     Indication: SLEEP DISORDER
     Route: 048
     Dates: start: 1992, end: 20160801
  2. ALPRAZOLAM TABLETS 0.25 MG [Suspect]
     Active Substance: ALPRAZOLAM
     Indication: SLEEP DISORDER
     Route: 048
     Dates: start: 20160810, end: 20160828

REACTIONS (8)
  - Nausea [Recovering/Resolving]
  - Headache [Recovering/Resolving]
  - Rash pruritic [Recovering/Resolving]
  - Insomnia [Recovering/Resolving]
  - Muscle spasms [Recovering/Resolving]
  - Flushing [Recovering/Resolving]
  - Oropharyngeal pain [Recovering/Resolving]
  - Fatigue [Recovering/Resolving]

NARRATIVE: CASE EVENT DATE: 20160810
